FAERS Safety Report 9397946 (Version 2)
Quarter: 2013Q3

REPORT INFORMATION
  Report Type: Spontaneous
  Country: US (occurrence: US)
  Receive Date: 20130712
  Receipt Date: 20130715
  Transmission Date: 20140515
  Serious: Yes (Hospitalization)
  Sender: FDA-Public Use
  Company Number: PHHY2013US071289

PATIENT
  Age: 4 Year
  Sex: Male

DRUGS (2)
  1. SULFADIAZINE [Suspect]
     Indication: CEREBRAL TOXOPLASMOSIS
  2. PYRIMETHAMINE [Concomitant]
     Indication: CEREBRAL TOXOPLASMOSIS

REACTIONS (1)
  - Renal failure [Unknown]
